FAERS Safety Report 8088925-X (Version None)
Quarter: 2012Q1

REPORT INFORMATION
  Report Type: 
  Country: None (occurrence: None)
  Receive Date: 20120128
  Receipt Date: 20110623
  Transmission Date: 20120608
  Serious: No
  Sender: FDA-Public Use
  Company Number: US-ABBOTT-11P-163-0734779-00

PATIENT
  Age: 56 Year
  Sex: Female

DRUGS (7)
  1. OVER THE COUNTER MEDICATONS [Concomitant]
     Indication: PRODUCT USED FOR UNKNOWN INDICATION
  2. HERBAL MEDICATIONS [Concomitant]
     Indication: PRODUCT USED FOR UNKNOWN INDICATION
  3. AMLODIPINE [Concomitant]
     Indication: HYPERTENSION
  4. HUMIRA [Suspect]
     Indication: PSORIASIS
     Dates: start: 20080101
  5. LOSARTAN POTASSIUM [Concomitant]
     Indication: HYPERTENSION
     Route: 048
  6. LIPITOR [Concomitant]
     Indication: BLOOD CHOLESTEROL INCREASED
     Route: 048
     Dates: start: 20090101
  7. MULTI-VITAMIN [Concomitant]
     Indication: VITAMIN SUPPLEMENTATION
     Dosage: FOR MANY YEARS
     Route: 048

REACTIONS (3)
  - PSORIASIS [None]
  - MYALGIA [None]
  - PAIN IN EXTREMITY [None]
